FAERS Safety Report 6276028-6 (Version None)
Quarter: 2009Q3

REPORT INFORMATION
  Report Type: 
  Country: None (occurrence: None)
  Receive Date: 20090722
  Receipt Date: 20070907
  Transmission Date: 20100115
  Serious: Yes (Other)
  Sender: FDA-Public Use
  Company Number: US-ASTRAZENECA-2006UW24909

PATIENT
  Age: 19500 Day
  Sex: Female
  Weight: 75.7 kg

DRUGS (19)
  1. SEROQUEL [Suspect]
     Indication: BIPOLAR DISORDER
     Dosage: 100 MG TO 600 MG
     Route: 048
     Dates: start: 20041213
  2. SEROQUEL [Suspect]
     Indication: DEPRESSION
     Dosage: 100 MG TO 600 MG
     Route: 048
     Dates: start: 20041213
  3. SEROQUEL [Suspect]
     Indication: SLEEP DISORDER
     Dosage: 100 MG TO 600 MG
     Route: 048
     Dates: start: 20041213
  4. SEROQUEL [Suspect]
     Indication: ANXIETY
     Dosage: 100 MG TO 600 MG
     Route: 048
     Dates: start: 20041213
  5. SEROQUEL [Suspect]
     Indication: AFFECTIVE DISORDER
     Dosage: 100 MG TO 600 MG
     Route: 048
     Dates: start: 20041213
  6. SEROQUEL [Suspect]
     Route: 048
     Dates: start: 20051101
  7. SEROQUEL [Suspect]
     Route: 048
     Dates: start: 20051101
  8. SEROQUEL [Suspect]
     Route: 048
     Dates: start: 20051101
  9. SEROQUEL [Suspect]
     Route: 048
     Dates: start: 20051101
  10. SEROQUEL [Suspect]
     Route: 048
     Dates: start: 20051101
  11. HALDOL [Concomitant]
  12. STELAZINE [Concomitant]
  13. THORAZINE [Concomitant]
  14. ZYPREXA [Concomitant]
  15. TEGRETOL [Concomitant]
     Dates: start: 20040916
  16. KLONOPIN [Concomitant]
     Dates: start: 20041213
  17. GEODON [Concomitant]
     Dosage: 120 MG Q EVENING
     Dates: start: 20070601
  18. ZOLOFT [Concomitant]
     Dates: start: 20040916
  19. LITHIUM [Concomitant]
     Dates: start: 20041213

REACTIONS (2)
  - DIABETES MELLITUS [None]
  - NEUROPATHY PERIPHERAL [None]
